FAERS Safety Report 19673791 (Version 1)
Quarter: 2021Q3

REPORT INFORMATION
  Report Type: Spontaneous
  Country: US (occurrence: US)
  Receive Date: 20210806
  Receipt Date: 20210806
  Transmission Date: 20211014
  Serious: No
  Sender: FDA-Public Use
  Company Number: None

PATIENT
  Sex: Female

DRUGS (3)
  1. TREMFYA [Suspect]
     Active Substance: GUSELKUMAB
     Indication: PSORIATIC ARTHROPATHY
     Dosage: INJECT 1 PEN UNDER THE SKIN AT WEEK 0 THEN WEEK 4 THEN EVERY 8 WEEKS
     Route: 058
     Dates: start: 20210507
  2. TREMFYA [Suspect]
     Active Substance: GUSELKUMAB
     Indication: RHEUMATOID ARTHRITIS
     Dosage: INJECT 1 PEN UNDER THE SKIN AT WEEK 0 THEN WEEK 4 THEN EVERY 8 WEEKS
     Route: 058
     Dates: start: 20210507
  3. TREMFYA [Suspect]
     Active Substance: GUSELKUMAB
     Indication: PSORIASIS
     Dosage: INJECT 1 PEN UNDER THE SKIN AT WEEK 0 THEN WEEK 4 THEN EVERY 8 WEEKS
     Route: 058
     Dates: start: 20210507

REACTIONS (1)
  - Dyspnoea [None]
